FAERS Safety Report 13613543 (Version 1)
Quarter: 2017Q2

REPORT INFORMATION
  Report Type: Report from Study
  Country: None (occurrence: CO)
  Receive Date: 20170605
  Receipt Date: 20170605
  Transmission Date: 20170830
  Serious: Yes (Hospitalization)
  Sender: FDA-Public Use
  Company Number: CO-ABBVIE-17K-036-1997311-00

PATIENT
  Age: 39 Year
  Sex: Male
  Weight: 60 kg

DRUGS (4)
  1. MESALAZINE [Concomitant]
     Active Substance: MESALAMINE
     Indication: PRODUCT USED FOR UNKNOWN INDICATION
  2. AZATHIOPRINE. [Concomitant]
     Active Substance: AZATHIOPRINE
     Indication: PRODUCT USED FOR UNKNOWN INDICATION
  3. HUMIRA [Suspect]
     Active Substance: ADALIMUMAB
     Indication: COLITIS ULCERATIVE
     Route: 058
     Dates: start: 20160701
  4. PREDNISOLONE. [Concomitant]
     Active Substance: PREDNISOLONE
     Indication: PRODUCT USED FOR UNKNOWN INDICATION

REACTIONS (4)
  - Gastrointestinal infection [Not Recovered/Not Resolved]
  - Anal fistula [Not Recovered/Not Resolved]
  - Diarrhoea [Not Recovered/Not Resolved]
  - Proctitis [Not Recovered/Not Resolved]

NARRATIVE: CASE EVENT DATE: 20170531
